FAERS Safety Report 9984262 (Version 1)
Quarter: 2014Q1

REPORT INFORMATION
  Report Type: Report from Study
  Country: US (occurrence: US)
  Receive Date: 20140307
  Receipt Date: 20140307
  Transmission Date: 20141002
  Serious: Yes (Hospitalization, Other)
  Sender: FDA-Public Use
  Company Number: US-ABBVIE-13P-163-1181685-00

PATIENT
  Sex: Male

DRUGS (2)
  1. HUMIRA [Suspect]
     Indication: PRODUCT USED FOR UNKNOWN INDICATION
     Dates: end: 201303
  2. HUMIRA [Suspect]
     Dates: start: 20130806

REACTIONS (5)
  - Pneumonia [Unknown]
  - Rib fracture [Unknown]
  - Knee arthroplasty [Recovered/Resolved]
  - Postoperative wound infection [Recovered/Resolved]
  - Fall [Unknown]
